FAERS Safety Report 13693401 (Version 1)
Quarter: 2017Q2

REPORT INFORMATION
  Report Type: Report from Study
  Country: US (occurrence: US)
  Receive Date: 20170627
  Receipt Date: 20170627
  Transmission Date: 20170830
  Serious: Yes (Hospitalization, Other)
  Sender: FDA-Public Use
  Company Number: US-GILEAD-2017-0277466

PATIENT
  Age: 67 Year
  Sex: Female

DRUGS (22)
  1. CHOLECALCIFEROL [Concomitant]
     Active Substance: CHOLECALCIFEROL
  2. FOLVITE                            /00024201/ [Concomitant]
  3. CORGARD [Concomitant]
     Active Substance: NADOLOL
  4. AMBRISENTAN [Suspect]
     Active Substance: AMBRISENTAN
     Indication: PULMONARY ARTERIAL HYPERTENSION
     Dosage: 5 MG, QD
     Route: 065
     Dates: start: 20170428
  5. HUMALOG [Concomitant]
     Active Substance: INSULIN LISPRO
  6. CLEOCIN [Concomitant]
     Active Substance: CLINDAMYCIN PHOSPHATE
  7. FLONASE [Concomitant]
     Active Substance: FLUTICASONE PROPIONATE
  8. LEVEMIR [Concomitant]
     Active Substance: INSULIN DETEMIR
  9. IMODIUM [Concomitant]
     Active Substance: LOPERAMIDE HYDROCHLORIDE
  10. AMBRISENTAN [Suspect]
     Active Substance: AMBRISENTAN
     Indication: LIVER SARCOIDOSIS
  11. DIPROLENE [Concomitant]
     Active Substance: BETAMETHASONE DIPROPIONATE
  12. KEPPRA [Concomitant]
     Active Substance: LEVETIRACETAM
  13. CLARITIN [Concomitant]
     Active Substance: LORATADINE
  14. PROTONIX [Concomitant]
     Active Substance: PANTOPRAZOLE SODIUM
  15. BREO ELLIPTA [Concomitant]
     Active Substance: FLUTICASONE FUROATE\VILANTEROL TRIFENATATE
  16. PROLIA [Concomitant]
     Active Substance: DENOSUMAB
  17. CHRONULAC [Concomitant]
     Active Substance: LACTULOSE
  18. INDERAL [Concomitant]
     Active Substance: PROPRANOLOL HYDROCHLORIDE
  19. PROVENTIL [Concomitant]
     Active Substance: ALBUTEROL
  20. LASIX [Concomitant]
     Active Substance: FUROSEMIDE
  21. SODIUM BICARBONATE. [Concomitant]
     Active Substance: SODIUM BICARBONATE
  22. ALDACTONE [Concomitant]
     Active Substance: SPIRONOLACTONE

REACTIONS (7)
  - Dyspnoea [Unknown]
  - Peripheral swelling [Unknown]
  - Drug ineffective [Unknown]
  - Diarrhoea [Unknown]
  - Catheter site infection [Unknown]
  - Atrial fibrillation [Unknown]
  - Weight increased [Unknown]
